FAERS Safety Report 20895383 (Version 1)
Quarter: 2022Q2

REPORT INFORMATION
  Report Type: Report from Study
  Country: CA (occurrence: CA)
  Receive Date: 20220531
  Receipt Date: 20220531
  Transmission Date: 20220720
  Serious: Yes (Hospitalization, Other)
  Sender: FDA-Public Use
  Company Number: CA-BRISTOL-MYERS SQUIBB COMPANY-2022-025017

PATIENT
  Age: 73 Year
  Sex: Male
  Weight: 112.9 kg

DRUGS (3)
  1. OPDIVO [Suspect]
     Active Substance: NIVOLUMAB
     Indication: Non-small cell lung cancer
     Route: 042
     Dates: start: 20220307
  2. OPDIVO [Suspect]
     Active Substance: NIVOLUMAB
     Dosage: Q3WKS
     Route: 042
     Dates: start: 20210426, end: 20220412
  3. YERVOY [Suspect]
     Active Substance: IPILIMUMAB
     Indication: Non-small cell lung cancer
     Dosage: Q6WKS
     Route: 042
     Dates: start: 20210426, end: 20220412

REACTIONS (14)
  - Eyelid ptosis [Unknown]
  - Muscular weakness [Unknown]
  - Adverse event [Not Recovered/Not Resolved]
  - Dry mouth [Unknown]
  - Fatigue [Unknown]
  - Nausea [Unknown]
  - Depression [Unknown]
  - Anxiety [Unknown]
  - Appetite disorder [Unknown]
  - Feeling abnormal [Unknown]
  - Facial paralysis [Not Recovered/Not Resolved]
  - Myalgia [Unknown]
  - Somnolence [Unknown]
  - Sleep disorder [Unknown]
